FAERS Safety Report 9817638 (Version 1)
Quarter: 2013Q4

REPORT INFORMATION
  Report Type: Spontaneous
  Country: US (occurrence: None)
  Receive Date: 20131223
  Receipt Date: 20131223
  Transmission Date: 20140711
  Serious: Yes (Other)
  Sender: FDA-Public Use
  Company Number: 220173

PATIENT
  Age: 55 Year
  Sex: Male

DRUGS (2)
  1. PICATO GEL [Suspect]
     Indication: ACTINIC KERATOSIS
     Dates: start: 20130116
  2. MALOXICAM (MELOXICAM) [Concomitant]

REACTIONS (3)
  - Eye pain [None]
  - Eye pain [None]
  - Wrong technique in drug usage process [None]
